FAERS Safety Report 9100336 (Version 1)
Quarter: 2013Q1

REPORT INFORMATION
  Report Type: Spontaneous
  Country: NL (occurrence: NL)
  Receive Date: 20130215
  Receipt Date: 20130215
  Transmission Date: 20140127
  Serious: Yes (Disabling)
  Sender: FDA-Public Use
  Company Number: NL-MERCK-1302NLD003462

PATIENT
  Age: 65 Year
  Sex: Female
  Weight: 85 kg

DRUGS (5)
  1. ZOCOR [Suspect]
     Indication: HYPERCHOLESTEROLAEMIA
     Dosage: 40 MG, QD
     Route: 048
     Dates: start: 1992
  2. ASCAL BRISPER [Concomitant]
  3. FUROSEMIDE [Concomitant]
     Dosage: UNK
     Dates: start: 1987
  4. RENITEC (ENALAPRIL MALEATE) [Concomitant]
     Dosage: UNK
     Dates: start: 1987
  5. SELOKEEN ZOC [Concomitant]
     Dosage: UNK
     Dates: start: 1987

REACTIONS (2)
  - Myalgia [Not Recovered/Not Resolved]
  - Movement disorder [Not Recovered/Not Resolved]
